FAERS Safety Report 4661609-3 (Version None)
Quarter: 2005Q2

REPORT INFORMATION
  Report Type: 
  Country: None (occurrence: None)
  Receive Date: 20050511
  Receipt Date: 20050511
  Transmission Date: 20051028
  Serious: Yes (Hospitalization)
  Sender: FDA-Public Use
  Company Number: None

PATIENT
  Age: 86 Year
  Sex: Male

DRUGS (7)
  1. METOLAZONE [Suspect]
     Indication: CARDIAC DISORDER
     Dosage: 2.5 MG QD
     Dates: start: 20050315
  2. FUROSEMIDE [Suspect]
     Indication: CARDIAC DISORDER
     Dosage: 80 MG BID
     Dates: start: 19991101
  3. FELODIPINE [Concomitant]
  4. POTASSIUM CHLORIDE [Concomitant]
  5. TAMSULASIN [Concomitant]
  6. DIGOXIN [Concomitant]
  7. CELECOXIB [Concomitant]

REACTIONS (1)
  - UNEVALUABLE EVENT [None]
